FAERS Safety Report 5425977-7 (Version None)
Quarter: 2007Q3

REPORT INFORMATION
  Report Type: 
  Country: None (occurrence: None)
  Receive Date: 20070827
  Receipt Date: 20070816
  Transmission Date: 20080115
  Serious: Yes (Death)
  Sender: FDA-Public Use
  Company Number: BE-AMGEN-UK222017

PATIENT
  Age: 82 Year
  Sex: Male

DRUGS (7)
  1. ARANESP [Suspect]
     Indication: RENAL FAILURE CHRONIC
     Route: 065
     Dates: start: 20070419, end: 20070419
  2. ALLOPURINOL [Suspect]
     Route: 048
     Dates: end: 20070425
  3. COLCHICINE [Suspect]
     Route: 048
     Dates: end: 20070425
  4. LASIX [Concomitant]
     Route: 048
  5. ASAFLOW [Concomitant]
     Route: 048
  6. PANTOPRAZOLE SODIUM [Concomitant]
     Route: 048
  7. LOESFERRON [Concomitant]
     Route: 048

REACTIONS (2)
  - DEATH [None]
  - RASH GENERALISED [None]
